FAERS Safety Report 18325354 (Version 1)
Quarter: 2020Q3

REPORT INFORMATION
  Report Type: Spontaneous
  Country: None (occurrence: US)
  Receive Date: 20200929
  Receipt Date: 20200929
  Transmission Date: 20201103
  Serious: No
  Sender: FDA-Public Use
  Company Number: US-MILLICENT HOLDINGS LTD.-MILL20200069

PATIENT
  Age: 46 Year
  Sex: Female

DRUGS (2)
  1. INTRAROSA [Suspect]
     Active Substance: PRASTERONE
     Indication: VULVOVAGINAL DRYNESS
  2. INTRAROSA [Suspect]
     Active Substance: PRASTERONE
     Indication: DYSPAREUNIA
     Dosage: 6.5 MG
     Route: 067
     Dates: start: 2019

REACTIONS (4)
  - Poor quality product administered [None]
  - Incorrect dose administered [None]
  - Wrong technique in product usage process [None]
  - Product physical issue [None]

NARRATIVE: CASE EVENT DATE: 202008
